FAERS Safety Report 5302937-8 (Version None)
Quarter: 2007Q2

REPORT INFORMATION
  Report Type: 
  Country: None (occurrence: None)
  Receive Date: 20070413
  Receipt Date: 20070405
  Transmission Date: 20071010
  Serious: Yes (Other)
  Sender: FDA-Public Use
  Company Number: JPI-P-000990

PATIENT
  Age: 54 Year
  Sex: Female
  Weight: 46.7205 kg

DRUGS (8)
  1. XYREM (OXYBATE SODIUM) (500 MILLIGRAM/M/MILLILITRES [Suspect]
     Indication: ATTENTION DEFICIT/HYPERACTIVITY DISORDER
     Dosage: SEE IMAGE
     Route: 048
     Dates: start: 20070215, end: 20070314
  2. XYREM (OXYBATE SODIUM) (500 MILLIGRAM/M/MILLILITRES [Suspect]
     Indication: SLEEP DISORDER
     Dosage: SEE IMAGE
     Route: 048
     Dates: start: 20070215, end: 20070314
  3. XYREM (OXYBATE SODIUM) (500 MILLIGRAM/M/MILLILITRES [Suspect]
     Indication: ATTENTION DEFICIT/HYPERACTIVITY DISORDER
     Dosage: SEE IMAGE
     Route: 048
     Dates: start: 20060101, end: 20070406
  4. XYREM (OXYBATE SODIUM) (500 MILLIGRAM/M/MILLILITRES [Suspect]
     Indication: SLEEP DISORDER
     Dosage: SEE IMAGE
     Route: 048
     Dates: start: 20060101, end: 20070406
  5. GEODON [Concomitant]
  6. SYNTHROID [Concomitant]
  7. WELLBUTRIN [Concomitant]
  8. ADDERALL (OBETROL) [Concomitant]

REACTIONS (6)
  - CONVULSION [None]
  - DYSKINESIA [None]
  - FALL [None]
  - GRUNTING [None]
  - HYPERHIDROSIS [None]
  - SYNCOPE [None]
